FAERS Safety Report 25565581 (Version 1)
Quarter: 2025Q3

REPORT INFORMATION
  Report Type: Spontaneous
  Country: MX (occurrence: MX)
  Receive Date: 20250716
  Receipt Date: 20250716
  Transmission Date: 20251020
  Serious: Yes (Life-Threatening)
  Sender: ROCHE
  Company Number: MX-ROCHE-10000331032

PATIENT
  Age: 36 Year
  Sex: Male

DRUGS (3)
  1. OCRELIZUMAB [Suspect]
     Active Substance: OCRELIZUMAB
     Indication: Relapsing-remitting multiple sclerosis
     Route: 065
     Dates: start: 202412
  2. OCRELIZUMAB [Suspect]
     Active Substance: OCRELIZUMAB
     Route: 042
     Dates: start: 202501
  3. TERIFLUNOMIDE [Concomitant]
     Active Substance: TERIFLUNOMIDE

REACTIONS (5)
  - Rash [Recovered/Resolved]
  - COVID-19 [Recovered/Resolved]
  - Oedema mucosal [Recovered/Resolved]
  - External ear inflammation [Recovered/Resolved]
  - Dyspnoea [Recovered/Resolved]

NARRATIVE: CASE EVENT DATE: 20241201
